FAERS Safety Report 8625351-6 (Version None)
Quarter: 2012Q3

REPORT INFORMATION
  Report Type: 
  Country: None (occurrence: None)
  Receive Date: 20120827
  Receipt Date: 20120823
  Transmission Date: 20120928
  Serious: Yes (Other)
  Sender: FDA-Public Use
  Company Number: US-PFIZER INC-2012207798

PATIENT
  Sex: Male

DRUGS (1)
  1. LYRICA [Suspect]
     Dosage: 450 MG, UNK

REACTIONS (3)
  - GAIT DISTURBANCE [None]
  - FALL [None]
  - MUSCLE TWITCHING [None]
